FAERS Safety Report 8225831-1 (Version None)
Quarter: 2012Q1

REPORT INFORMATION
  Report Type: 
  Country: None (occurrence: None)
  Receive Date: 20120321
  Receipt Date: 20120306
  Transmission Date: 20120608
  Serious: No
  Sender: FDA-Public Use
  Company Number: US-ENDO PHARMACEUTICALS INC.-OPER20120290

PATIENT
  Sex: Female

DRUGS (3)
  1. OPANA ER [Suspect]
     Indication: INTERVERTEBRAL DISC DEGENERATION
  2. OPANA ER [Suspect]
     Indication: PAIN
     Route: 048
     Dates: start: 20060101, end: 20120305
  3. OPANA ER [Suspect]
     Indication: INTERVERTEBRAL DISC PROTRUSION

REACTIONS (1)
  - DRUG INEFFECTIVE [None]
